FAERS Safety Report 23180441 (Version 3)
Quarter: 2024Q1

REPORT INFORMATION
  Report Type: Spontaneous
  Country: US (occurrence: None)
  Receive Date: 20231114
  Receipt Date: 20240115
  Transmission Date: 20240409
  Serious: No
  Sender: FDA-Public Use
  Company Number: 2023A252543

PATIENT
  Age: 76 Year
  Sex: Female
  Weight: 53.1 kg

DRUGS (1)
  1. BREZTRI [Suspect]
     Active Substance: BUDESONIDE\FORMOTEROL\GLYCOPYRROLATE
     Indication: Chronic obstructive pulmonary disease
     Route: 055
     Dates: start: 202006

REACTIONS (7)
  - Mental impairment [Unknown]
  - Dyspnoea [Unknown]
  - Stress [Unknown]
  - Vision blurred [Unknown]
  - Device use issue [Unknown]
  - Device delivery system issue [Unknown]
  - Product dose omission issue [Recovered/Resolved with Sequelae]
